FAERS Safety Report 23261045 (Version 1)
Quarter: 2023Q4

REPORT INFORMATION
  Report Type: Report from Study
  Country: US (occurrence: None)
  Receive Date: 20231205
  Receipt Date: 20231205
  Transmission Date: 20240110
  Serious: Yes (Life-Threatening, Hospitalization)
  Sender: FDA-Public Use
  Company Number: US-ROCHE-3462373

PATIENT
  Age: 53 Year
  Sex: Male

DRUGS (9)
  1. ATEZOLIZUMAB [Suspect]
     Active Substance: ATEZOLIZUMAB
     Indication: Colorectal cancer metastatic
     Dosage: MOST RECENT DOSE OF STUDY DRUG ADMINISTERED PRIOR AE  ON 23/OCT/2023
     Route: 041
     Dates: start: 20231023
  2. ZANZALINTINIB [Suspect]
     Active Substance: ZANZALINTINIB
     Indication: Colorectal cancer metastatic
     Dosage: MOST RECENT DOSE OF STUDY DRUG ADMINISTERED PRIOR TO AE ON 01/NOV/2023.
     Route: 048
     Dates: start: 20231023
  3. ZANZALINTINIB [Suspect]
     Active Substance: ZANZALINTINIB
     Route: 048
     Dates: start: 20231101, end: 20231102
  4. LOPERAMIDE [Concomitant]
     Active Substance: LOPERAMIDE
     Dates: start: 20230804
  5. MORPHINE [Concomitant]
     Active Substance: MORPHINE
     Dates: start: 20230828
  6. ONDANSETRON [Concomitant]
     Active Substance: ONDANSETRON
     Dates: start: 20230509, end: 20231023
  7. OXYCODONE [Concomitant]
     Active Substance: OXYCODONE
     Dates: start: 20230908
  8. POTASSIUM CHLORIDE [Concomitant]
     Active Substance: POTASSIUM CHLORIDE
     Dates: start: 20230404
  9. TAMSULOSIN [Concomitant]
     Active Substance: TAMSULOSIN

REACTIONS (2)
  - Hyponatraemia [Not Recovered/Not Resolved]
  - Presyncope [Not Recovered/Not Resolved]

NARRATIVE: CASE EVENT DATE: 20231107
